FAERS Safety Report 11430534 (Version 1)
Quarter: 2015Q3

REPORT INFORMATION
  Report Type: Spontaneous
  Country: US (occurrence: US)
  Receive Date: 20150828
  Receipt Date: 20150828
  Transmission Date: 20151125
  Serious: No
  Sender: FDA-Public Use
  Company Number: US-ROCHE-1245781

PATIENT
  Sex: Male

DRUGS (3)
  1. RIBASPHERE RIBAPAK [Suspect]
     Active Substance: RIBAVIRIN
     Indication: HEPATITIS C
     Dosage: 600/400
     Route: 065
     Dates: start: 20130531
  2. PEGASYS [Suspect]
     Active Substance: PEGINTERFERON ALFA-2A
     Indication: HEPATITIS C
     Route: 065
     Dates: start: 20130531
  3. TELAPREVIR [Suspect]
     Active Substance: TELAPREVIR
     Indication: HEPATITIS C
     Route: 065
     Dates: start: 20130531

REACTIONS (12)
  - Anorectal discomfort [Unknown]
  - Dizziness [Unknown]
  - Dysgeusia [Unknown]
  - Cough [Unknown]
  - Fatigue [Unknown]
  - Diarrhoea [Unknown]
  - Upper-airway cough syndrome [Unknown]
  - Agitation [Unknown]
  - Decreased appetite [Unknown]
  - Heart rate increased [Unknown]
  - Pruritus [Unknown]
  - Rash [Unknown]
